FAERS Safety Report 13821618 (Version 1)
Quarter: 2017Q3

REPORT INFORMATION
  Report Type: Spontaneous
  Country: US (occurrence: US)
  Receive Date: 20170801
  Receipt Date: 20170801
  Transmission Date: 20171127
  Serious: No
  Sender: FDA-Public Use
  Company Number: US-009507513-1707USA011842

PATIENT
  Sex: Female
  Weight: 70.39 kg

DRUGS (1)
  1. NEXPLANON [Suspect]
     Active Substance: ETONOGESTREL
     Indication: CONTRACEPTION
     Dosage: 1 IMPLANT,  UNK
     Route: 059
     Dates: start: 20151020, end: 20170620

REACTIONS (3)
  - Implant site pain [Unknown]
  - Weight increased [Unknown]
  - Headache [Unknown]
